FAERS Safety Report 6164148-6 (Version None)
Quarter: 2009Q2

REPORT INFORMATION
  Report Type: 
  Country: None (occurrence: None)
  Receive Date: 20090422
  Receipt Date: 20090105
  Transmission Date: 20091009
  Serious: Yes (Hospitalization)
  Sender: FDA-Public Use
  Company Number: US-BAYER-200910198NA

PATIENT
  Age: 82 Year
  Sex: Female
  Weight: 77 kg

DRUGS (16)
  1. ADALAT [Suspect]
     Indication: HYPERTENSION
     Dosage: TOTAL DAILY DOSE: 60 MG  UNIT DOSE: 60 MG
     Route: 048
     Dates: start: 20080911, end: 20080912
  2. ADALAT [Suspect]
     Dosage: TOTAL DAILY DOSE: 30 MG  UNIT DOSE: 30 MG
     Route: 048
     Dates: start: 20080915
  3. BLINDED SCH (THROMBIN-RECEPTOR ANTAGONIST) [Suspect]
     Indication: THROMBOSIS PROPHYLAXIS
     Dosage: TOTAL DAILY DOSE: 2.5 MG  UNIT DOSE: 2.5 MG
     Route: 048
     Dates: start: 20080519
  4. SIMVASTATIN [Concomitant]
     Dates: start: 20080926
  5. ALISKIREN [Concomitant]
     Dates: start: 20080725, end: 20080911
  6. AROMASIN [Concomitant]
     Dates: start: 20080201
  7. METOPROLOL SUCCINATE [Concomitant]
     Dates: start: 20071101
  8. GABAPENTIN [Concomitant]
     Dates: start: 20060101
  9. NYSTATIN W/TRIAMCINOLONE [Concomitant]
     Dates: start: 20050101
  10. OLUX [Concomitant]
     Dates: start: 20050101
  11. HYDROCHLOROTHIAZIDE W/VALSARTAN [Concomitant]
  12. OSCAL D [Concomitant]
     Dates: start: 20040101
  13. CLOPIDOGREL [Concomitant]
     Dates: start: 20030101
  14. AMARYL [Concomitant]
     Dates: start: 20010101
  15. LIDOCAINE AND EPINEPHRINE [Concomitant]
     Dates: start: 20080826, end: 20080826
  16. ICAPS [Concomitant]
     Dates: start: 20040101

REACTIONS (2)
  - DEHYDRATION [None]
  - HYPOTENSION [None]
